FAERS Safety Report 6744489-1 (Version None)
Quarter: 2010Q2

REPORT INFORMATION
  Report Type: 
  Country: None (occurrence: None)
  Receive Date: 20100527
  Receipt Date: 20100520
  Transmission Date: 20101027
  Serious: Yes (Disabling, Other)
  Sender: FDA-Public Use
  Company Number: US-PFIZER INC-2008155887

PATIENT
  Sex: Female
  Weight: 100 kg

DRUGS (13)
  1. CHANTIX [Suspect]
     Indication: SMOKING CESSATION THERAPY
     Dosage: UNK
     Dates: start: 20080101, end: 20080101
  2. NICORETTE [Suspect]
     Dosage: UNK
  3. CELEXA [Concomitant]
     Indication: ANXIETY
     Dosage: UNK
  4. NORCO [Concomitant]
     Indication: BACK PAIN
     Dosage: UNK
  5. IBUPROFEN [Concomitant]
     Dosage: UNK
  6. VITAMIN B-12 [Concomitant]
     Dosage: UNK
  7. SOMA [Concomitant]
  8. ALEVE (CAPLET) [Concomitant]
  9. FLEXERIL [Concomitant]
     Dosage: UNK
  10. VITAMIN E [Concomitant]
  11. VITAMIN D [Concomitant]
     Dosage: UNK
  12. FISH OIL [Concomitant]
     Dosage: UNK
  13. OSTEO BI-FLEX [Concomitant]

REACTIONS (5)
  - DEPRESSION [None]
  - GAIT DISTURBANCE [None]
  - HALLUCINATION [None]
  - HYPERSOMNIA [None]
  - MEDICATION ERROR [None]
